FAERS Safety Report 25222253 (Version 2)
Quarter: 2025Q2

REPORT INFORMATION
  Report Type: Report from Study
  Country: US (occurrence: US)
  Receive Date: 20250421
  Receipt Date: 20250529
  Transmission Date: 20250717
  Serious: Yes (Hospitalization, Other)
  Sender: UCB
  Company Number: US-UCBSA-2024055304

PATIENT
  Age: 52 Year
  Sex: Female
  Weight: 45.8 kg

DRUGS (2)
  1. ZILUCOPLAN [Suspect]
     Active Substance: ZILUCOPLAN
     Indication: Myasthenia gravis
     Dosage: 16.6 MILLIGRAM, ONCE DAILY (QD)
     Route: 058
     Dates: start: 20240905
  2. ZILUCOPLAN [Suspect]
     Active Substance: ZILUCOPLAN
     Dosage: 16.6 MILLIGRAM, ONCE DAILY (QD)
     Route: 058

REACTIONS (7)
  - Thymic cyst [Recovered/Resolved]
  - Thymectomy [Recovered/Resolved]
  - Surgery [Recovered/Resolved]
  - Hospitalisation [Unknown]
  - Intentional dose omission [Unknown]
  - Therapy interrupted [Unknown]
  - Insurance issue [Unknown]

NARRATIVE: CASE EVENT DATE: 20241201
